FAERS Safety Report 6818870 (Version 5)
Quarter: 2014Q1

REPORT INFORMATION
  Report Type: Spontaneous
  Country: ZA (occurrence: ZA)
  Receive Date: 20081121
  Receipt Date: 20140131
  Transmission Date: 20141002
  Serious: Yes (Hospitalization, Other)
  Sender: FDA-Public Use
  Company Number: PHHY2008ZA28683

PATIENT
  Age: 73 Year
  Sex: Male
  Weight: 82 kg

DRUGS (3)
  1. VOLTAREN [Suspect]
     Indication: FATIGUE
     Dosage: 50 MG, ONCE/SINGLE
     Route: 048
     Dates: start: 200403, end: 200403
  2. VOLTAREN [Suspect]
     Indication: BACK INJURY
     Dosage: 50 MG, ONCE/SINGLE
     Route: 048
     Dates: start: 20081116, end: 20081116
  3. VOLTAREN [Suspect]
     Dosage: 50 MG, UNK

REACTIONS (4)
  - Prostatic disorder [Unknown]
  - Haemorrhage [Unknown]
  - Urinary retention [Unknown]
  - Haematuria [Recovered/Resolved]
